FAERS Safety Report 9646440 (Version 1)
Quarter: 2013Q4

REPORT INFORMATION
  Report Type: Other
  Country: CN (occurrence: CN)
  Receive Date: 20131025
  Receipt Date: 20131025
  Transmission Date: 20140711
  Serious: Yes (Other)
  Sender: FDA-Public Use
  Company Number: CN-BRISTOL-MYERS SQUIBB COMPANY-19617372

PATIENT
  Age: 59 Year
  Sex: Female

DRUGS (5)
  1. CETUXIMAB [Suspect]
     Indication: COLON CANCER
     Dosage: DOSE:400 MG D1,D8,D14 DAYS
     Route: 042
     Dates: start: 20100720
  2. 5-FLUOROURACIL [Suspect]
     Indication: COLON CANCER
     Dosage: 1DF:0.5 D1 PUMP?3.5 FOR 44 HRS D1
     Route: 040
     Dates: start: 20100720, end: 20110113
  3. OXALIPLATIN [Suspect]
     Indication: COLON CANCER
     Dosage: DOSE:100 MG?20JUL2010-13JAN2011:177D?20APR2011-13MAY
     Route: 042
     Dates: start: 20100720
  4. CALCIUM [Suspect]
     Indication: COLON CANCER
     Route: 040
     Dates: start: 20100720, end: 20110113
  5. CAPECITABINE [Concomitant]
     Dosage: 1DF:1.5 GRAM IN MOR AND 1 GRAM IN EVE?20APR2011-13MAY?08AUG2012-13DEC2012:127D
     Route: 048
     Dates: start: 20110420, end: 20121213

REACTIONS (3)
  - Neurotoxicity [Unknown]
  - Platelet count decreased [Unknown]
  - Dermatitis acneiform [Unknown]
